FAERS Safety Report 7727561-9 (Version None)
Quarter: 2011Q3

REPORT INFORMATION
  Report Type: 
  Country: None (occurrence: None)
  Receive Date: 20110902
  Receipt Date: 20110830
  Transmission Date: 20111222
  Serious: Yes (Hospitalization, Other)
  Sender: FDA-Public Use
  Company Number: US-PFIZER INC-2011202644

PATIENT
  Sex: Female
  Weight: 66 kg

DRUGS (2)
  1. EFFEXOR [Concomitant]
     Indication: BIPOLAR DISORDER
     Dosage: UNK
  2. LYRICA [Suspect]
     Indication: FIBROMYALGIA
     Dosage: 100 MG, 3X/DAY
     Route: 048

REACTIONS (2)
  - IMPAIRED DRIVING ABILITY [None]
  - GRAND MAL CONVULSION [None]
